FAERS Safety Report 18606487 (Version 1)
Quarter: 2020Q4

REPORT INFORMATION
  Report Type: Spontaneous
  Country: JP (occurrence: JP)
  Receive Date: 20201211
  Receipt Date: 20201211
  Transmission Date: 20210114
  Serious: Yes (Other)
  Sender: FDA-Public Use
  Company Number: JP-GILEAD-2020-0508414

PATIENT
  Age: 64 Year
  Sex: Female

DRUGS (4)
  1. LACTULOSE. [Concomitant]
     Active Substance: LACTULOSE
  2. EPCLUSA [Suspect]
     Active Substance: SOFOSBUVIR\VELPATASVIR
     Indication: HEPATITIS C
     Dosage: UNK
     Route: 065
  3. EPCLUSA [Suspect]
     Active Substance: SOFOSBUVIR\VELPATASVIR
     Indication: HEPATIC CIRRHOSIS
  4. RIFAXIMIN. [Concomitant]
     Active Substance: RIFAXIMIN

REACTIONS (5)
  - Varices oesophageal [Unknown]
  - Ascites [Recovering/Resolving]
  - Platelet count decreased [Unknown]
  - Oedema [Recovering/Resolving]
  - Portal hypertension [Unknown]
